FAERS Safety Report 8610396-2 (Version None)
Quarter: 2012Q3

REPORT INFORMATION
  Report Type: 
  Country: None (occurrence: None)
  Receive Date: 20120822
  Receipt Date: 20120820
  Transmission Date: 20120928
  Serious: Yes (Other)
  Sender: FDA-Public Use
  Company Number: PHHY2012DE068087

PATIENT
  Weight: 82 kg

DRUGS (7)
  1. EXELON [Suspect]
     Dosage: 6 MG, BID
     Route: 048
     Dates: start: 20120802, end: 20120803
  2. DOMPERIDONE [Concomitant]
  3. EXELON [Suspect]
     Indication: PARKINSON'S DISEASE
     Dosage: 2 DF, UNK
     Route: 048
  4. MIDODRINE HYDROCHLORIDE [Concomitant]
     Dosage: 30 MG/DAY
  5. EXELON [Suspect]
     Dosage: 6 MG, UNK
     Route: 048
     Dates: start: 20120805
  6. EXELON [Suspect]
     Dosage: 4 CAPSULES  OF 3 MG, ONCE/SINGLE
     Route: 048
  7. LEVODOPA [Concomitant]
     Dosage: 375 MG/DAY

REACTIONS (5)
  - PALLOR [None]
  - BLOOD PRESSURE INCREASED [None]
  - OVERDOSE [None]
  - NAUSEA [None]
  - CONFUSIONAL STATE [None]
